FAERS Safety Report 23020578 (Version 8)
Quarter: 2024Q3

REPORT INFORMATION
  Report Type: Spontaneous
  Country: US (occurrence: US)
  Receive Date: 20231003
  Receipt Date: 20240727
  Transmission Date: 20241016
  Serious: No
  Sender: DAIICHI
  Company Number: US-DAIICHI SANKYO, INC.-DSU-2023-140199AA

PATIENT
  Sex: Female

DRUGS (1)
  1. ENHERTU [Suspect]
     Active Substance: FAM-TRASTUZUMAB DERUXTECAN-NXKI
     Indication: Breast cancer metastatic
     Dosage: UNK
     Route: 065

REACTIONS (7)
  - Skin odour abnormal [Unknown]
  - Weight increased [Recovering/Resolving]
  - Food craving [Recovered/Resolved]
  - Dyspepsia [Unknown]
  - Alopecia [Recovering/Resolving]
  - Nausea [Unknown]
  - Fatigue [Unknown]
